FAERS Safety Report 6231274-2 (Version None)
Quarter: 2009Q2

REPORT INFORMATION
  Report Type: 
  Country: None (occurrence: None)
  Receive Date: 20090616
  Receipt Date: 20090608
  Transmission Date: 20091009
  Serious: Yes (Death, Hospitalization, Other)
  Sender: FDA-Public Use
  Company Number: US-AMGEN-KDL350708

PATIENT
  Sex: Female

DRUGS (2)
  1. PROCRIT [Suspect]
     Indication: DRUG USE FOR UNKNOWN INDICATION
  2. INSULIN [Concomitant]

REACTIONS (6)
  - DEATH [None]
  - DECUBITUS ULCER [None]
  - HOSPITALISATION [None]
  - LEG AMPUTATION [None]
  - RENAL FAILURE [None]
  - SEPSIS [None]
